FAERS Safety Report 9607769 (Version 1)
Quarter: 2013Q4

REPORT INFORMATION
  Report Type: Spontaneous
  Country: US (occurrence: None)
  Receive Date: 20131008
  Receipt Date: 20131008
  Transmission Date: 20140711
  Serious: No
  Sender: FDA-Public Use
  Company Number: None

PATIENT
  Age: 76 Year
  Sex: Female
  Weight: 56.7 kg

DRUGS (7)
  1. DEXILANT [Suspect]
     Indication: GASTROOESOPHAGEAL REFLUX DISEASE
     Dosage: 1 PILL ONCE DAILY BY MOUTH
     Route: 048
     Dates: start: 20130801, end: 20130815
  2. LEVOTHYROXINE [Concomitant]
  3. ESTRADIOL [Concomitant]
  4. CALCIUM [Concomitant]
  5. VITAMIN D [Concomitant]
  6. MAGNESIUM [Concomitant]
  7. FLEXSEED OIL [Concomitant]

REACTIONS (1)
  - Deafness unilateral [None]
